FAERS Safety Report 20863904 (Version 1)
Quarter: 2022Q2

REPORT INFORMATION
  Report Type: Spontaneous
  Country: US (occurrence: US)
  Receive Date: 20220523
  Receipt Date: 20220523
  Transmission Date: 20220721
  Serious: No
  Sender: FDA-Public Use
  Company Number: US-Cardinal Health 414-NPHS-AE-22-4

PATIENT
  Age: 50 Year
  Sex: Female

DRUGS (2)
  1. LEXISCAN [Concomitant]
     Active Substance: REGADENOSON
     Indication: Cardiac stress test
     Dates: start: 20220115, end: 20220115
  2. KIT FOR THE PREPARATION OF TECHNETIUM TC99M SESTAMIBI [Suspect]
     Active Substance: TECHNETIUM TC-99M SESTAMIBI
     Indication: Scan myocardial perfusion
     Route: 042
     Dates: start: 20220115, end: 20220115

REACTIONS (2)
  - Vomiting [Unknown]
  - Hypertension [Unknown]

NARRATIVE: CASE EVENT DATE: 20220115
